FAERS Safety Report 12617460 (Version 1)
Quarter: 2016Q3

REPORT INFORMATION
  Report Type: Spontaneous
  Country: US (occurrence: None)
  Receive Date: 20160802
  Receipt Date: 20160802
  Transmission Date: 20161109
  Serious: Yes (Disabling)
  Sender: FDA-Public Use
  Company Number: None

PATIENT
  Age: 69 Year
  Sex: Male
  Weight: 98.88 kg

DRUGS (22)
  1. RANEXA [Concomitant]
     Active Substance: RANOLAZINE
  2. OMEGA-3 ACIDS [Concomitant]
     Active Substance: OMEGA-3 FATTY ACIDS
  3. VITAMIN B12 [Concomitant]
     Active Substance: CYANOCOBALAMIN
  4. VITAMIN D3 [Concomitant]
     Active Substance: CHOLECALCIFEROL
  5. PLAVIX [Concomitant]
     Active Substance: CLOPIDOGREL BISULFATE
  6. MYRBETRIQ [Concomitant]
     Active Substance: MIRABEGRON
  7. SIMVASTATIN. [Concomitant]
     Active Substance: SIMVASTATIN
  8. LEVOTHYROXIN [Concomitant]
     Active Substance: LEVOTHYROXINE
  9. ALLOPURINOL. [Concomitant]
     Active Substance: ALLOPURINOL
  10. ASPIRIN. [Concomitant]
     Active Substance: ASPIRIN
  11. VESICARE [Concomitant]
     Active Substance: SOLIFENACIN SUCCINATE
  12. FAMOTIDINE. [Concomitant]
     Active Substance: FAMOTIDINE
  13. REPATHA [Suspect]
     Active Substance: EVOLOCUMAB
     Indication: BLOOD CHOLESTEROL INCREASED
     Dosage: 1 INJECTION (S) EVERY 2 WEEKS GIVEN INTO/UNDER THE SKIN
  14. REPATHA [Suspect]
     Active Substance: EVOLOCUMAB
     Indication: DRUG INTOLERANCE
     Dosage: 1 INJECTION (S) EVERY 2 WEEKS GIVEN INTO/UNDER THE SKIN
  15. ZETIA [Concomitant]
     Active Substance: EZETIMIBE
  16. LABETALOL [Concomitant]
     Active Substance: LABETALOL\LABETALOL HYDROCHLORIDE
  17. FISHOIL [Concomitant]
  18. HYDROCHLOROTHIAZIDE. [Concomitant]
     Active Substance: HYDROCHLOROTHIAZIDE
  19. DIOVAN [Concomitant]
     Active Substance: VALSARTAN
  20. NIFEDIPINE. [Concomitant]
     Active Substance: NIFEDIPINE
  21. TRAMADOL. [Concomitant]
     Active Substance: TRAMADOL
  22. IRON [Concomitant]
     Active Substance: IRON

REACTIONS (2)
  - Balance disorder [None]
  - Dizziness [None]

NARRATIVE: CASE EVENT DATE: 20160801
